FAERS Safety Report 18743476 (Version 1)
Quarter: 2021Q1

REPORT INFORMATION
  Report Type: Spontaneous
  Country: US (occurrence: US)
  Receive Date: 20210115
  Receipt Date: 20210115
  Transmission Date: 20210419
  Serious: Yes (Hospitalization)
  Sender: FDA-Public Use
  Company Number: US-APOTEX-2021AP000393

PATIENT
  Sex: Female

DRUGS (2)
  1. CETIRIZINE [Suspect]
     Active Substance: CETIRIZINE HYDROCHLORIDE
     Indication: HYPERSENSITIVITY
  2. CETIRIZINE [Suspect]
     Active Substance: CETIRIZINE HYDROCHLORIDE
     Indication: UPPER-AIRWAY COUGH SYNDROME
     Dosage: 1 DOSAGE FORM, QD
     Route: 065
     Dates: start: 202011, end: 202011

REACTIONS (6)
  - Pain [Recovered/Resolved]
  - Bowel movement irregularity [Recovered/Resolved]
  - Product substitution issue [Unknown]
  - Constipation [Recovered/Resolved]
  - Colitis [Recovered/Resolved]
  - Large intestine infection [Recovered/Resolved]
